FAERS Safety Report 5058259-6 (Version None)
Quarter: 2006Q2

REPORT INFORMATION
  Report Type: 
  Country: None (occurrence: None)
  Receive Date: 20060627
  Receipt Date: 20051214
  Transmission Date: 20061013
  Serious: Yes (Hospitalization)
  Sender: FDA-Public Use
  Company Number: 428521

PATIENT
  Age: 7 Year
  Sex: Female

DRUGS (1)
  1. INTERFERON ALFA (INTERFERON ALFA) [Suspect]
     Indication: HEPATITIS C
     Dosage: 1.5 MILLIONIU 3 PER WEEK

REACTIONS (1)
  - COLITIS [None]
